FAERS Safety Report 24692719 (Version 15)
Quarter: 2025Q3

REPORT INFORMATION
  Report Type: Spontaneous
  Country: CA (occurrence: CA)
  Receive Date: 20241203
  Receipt Date: 20250718
  Transmission Date: 20251021
  Serious: Yes (Death, Life-Threatening, Hospitalization, Disabling, Congenital Anomaly, Other)
  Sender: TAKEDA
  Company Number: CA-TAKEDA-2024TUS078607

PATIENT
  Age: 80 Year
  Sex: Male
  Weight: 69 kg

DRUGS (160)
  1. FOSRENOL [Suspect]
     Active Substance: LANTHANUM CARBONATE
     Indication: Blood phosphorus increased
  2. FOSRENOL [Suspect]
     Active Substance: LANTHANUM CARBONATE
     Indication: Hyperphosphataemia
     Dosage: 550 MILLIGRAM, QD
  3. FOSRENOL [Suspect]
     Active Substance: LANTHANUM CARBONATE
  4. LANTHANUM CARBONATE [Suspect]
     Active Substance: LANTHANUM CARBONATE
     Indication: Blood phosphorus increased
  5. LANTHANUM CARBONATE [Suspect]
     Active Substance: LANTHANUM CARBONATE
     Indication: Hyperphosphataemia
  6. LANTHANUM CARBONATE [Suspect]
     Active Substance: LANTHANUM CARBONATE
     Indication: Off label use
     Dosage: 500 MILLIGRAM, QD
  7. LANTHANUM CARBONATE [Suspect]
     Active Substance: LANTHANUM CARBONATE
  8. LANTHANUM CARBONATE [Suspect]
     Active Substance: LANTHANUM CARBONATE
  9. LANTHANUM CARBONATE [Suspect]
     Active Substance: LANTHANUM CARBONATE
     Dosage: 550 MILLIGRAM, QD
  10. LANTHANUM CARBONATE [Suspect]
     Active Substance: LANTHANUM CARBONATE
     Dosage: 500 MICROGRAM, QD
  11. LANTHANUM CARBONATE [Suspect]
     Active Substance: LANTHANUM CARBONATE
  12. LANTHANUM CARBONATE [Suspect]
     Active Substance: LANTHANUM CARBONATE
     Dosage: 500 MILLIGRAM, QD
  13. LANTHANUM CARBONATE [Suspect]
     Active Substance: LANTHANUM CARBONATE
     Dosage: 550 MICROGRAM, QD
  14. LANTHANUM CARBONATE [Suspect]
     Active Substance: LANTHANUM CARBONATE
     Dosage: 550 MICROGRAM, Q8HR
  15. LANTHANUM CARBONATE [Suspect]
     Active Substance: LANTHANUM CARBONATE
     Dosage: 500 MICROGRAM, QD
  16. DEXLANSOPRAZOLE [Suspect]
     Active Substance: DEXLANSOPRAZOLE
     Indication: Product used for unknown indication
     Dosage: 60 MILLIGRAM, QD
  17. DEXLANSOPRAZOLE [Suspect]
     Active Substance: DEXLANSOPRAZOLE
  18. DEXLANSOPRAZOLE [Suspect]
     Active Substance: DEXLANSOPRAZOLE
     Indication: Product used for unknown indication
     Dosage: 60 MILLIGRAM, QD
  19. ONDANSETRON [Suspect]
     Active Substance: ONDANSETRON
     Indication: Nausea
     Dosage: 36 MILLIGRAM, QD
  20. ONDANSETRON [Suspect]
     Active Substance: ONDANSETRON
     Indication: Vomiting
     Dosage: 4 MILLIGRAM, Q8HR
  21. ONDANSETRON [Suspect]
     Active Substance: ONDANSETRON
     Indication: Off label use
     Dosage: 12 MILLIGRAM, Q8HR
  22. ONDANSETRON [Suspect]
     Active Substance: ONDANSETRON
  23. ONDANSETRON [Suspect]
     Active Substance: ONDANSETRON
     Dosage: 24 MILLIGRAM, Q8HR
  24. ONDANSETRON [Suspect]
     Active Substance: ONDANSETRON
     Dosage: 40 MILLIGRAM, Q8HR
  25. ONDANSETRON [Suspect]
     Active Substance: ONDANSETRON
     Dosage: 41.14 MILLIGRAM, Q8HR
  26. ONDANSETRON [Suspect]
     Active Substance: ONDANSETRON
     Dosage: 4 MILLIGRAM, QD
     Dates: start: 20200601
  27. ONDANSETRON [Suspect]
     Active Substance: ONDANSETRON
     Dosage: 24 MILLIGRAM, QD
  28. ONDANSETRON [Suspect]
     Active Substance: ONDANSETRON
     Dosage: 1 DOSAGE FORM, Q8HR
  29. ONDANSETRON [Suspect]
     Active Substance: ONDANSETRON
     Dosage: 12 MILLIGRAM, QD
  30. ONDANSETRON [Suspect]
     Active Substance: ONDANSETRON
     Dosage: 36 MILLIGRAM, Q8HR
  31. ONDANSETRON [Suspect]
     Active Substance: ONDANSETRON
     Dosage: 36 MILLIGRAM, TID
  32. ONDANSETRON [Suspect]
     Active Substance: ONDANSETRON
     Dosage: 123.3 MILLIGRAM, QD
  33. ONDANSETRON [Suspect]
     Active Substance: ONDANSETRON
     Dosage: 17 DOSAGE FORM, QD
  34. ONDANSETRON [Suspect]
     Active Substance: ONDANSETRON
  35. ONDANSETRON [Suspect]
     Active Substance: ONDANSETRON
  36. ONDANSETRON [Suspect]
     Active Substance: ONDANSETRON
  37. ONDANSETRON [Suspect]
     Active Substance: ONDANSETRON
  38. ONDANSETRON [Suspect]
     Active Substance: ONDANSETRON
  39. ONDANSETRON [Suspect]
     Active Substance: ONDANSETRON
  40. ONDANSETRON [Suspect]
     Active Substance: ONDANSETRON
     Dosage: 8 MILLIGRAM, Q8HR
  41. ONDANSETRON [Suspect]
     Active Substance: ONDANSETRON
     Dosage: UNK UNK, Q8HR
  42. ONDANSETRON [Suspect]
     Active Substance: ONDANSETRON
     Dosage: 4 MILLIGRAM, TID
  43. ONDANSETRON [Suspect]
     Active Substance: ONDANSETRON
     Dosage: 12 MILLIGRAM, TID
  44. ONDANSETRON [Suspect]
     Active Substance: ONDANSETRON
  45. ONDANSETRON [Suspect]
     Active Substance: ONDANSETRON
  46. ONDANSETRON [Suspect]
     Active Substance: ONDANSETRON
  47. ONDANSETRON [Suspect]
     Active Substance: ONDANSETRON
  48. ONDANSETRON [Suspect]
     Active Substance: ONDANSETRON
  49. ONDANSETRON [Suspect]
     Active Substance: ONDANSETRON
  50. ONDANSETRON [Suspect]
     Active Substance: ONDANSETRON
  51. ONDANSETRON [Suspect]
     Active Substance: ONDANSETRON
  52. ONDANSETRON [Suspect]
     Active Substance: ONDANSETRON
  53. ONDANSETRON [Suspect]
     Active Substance: ONDANSETRON
  54. ONDANSETRON [Suspect]
     Active Substance: ONDANSETRON
  55. ONDANSETRON [Suspect]
     Active Substance: ONDANSETRON
  56. ONDANSETRON [Suspect]
     Active Substance: ONDANSETRON
  57. ONDANSETRON [Suspect]
     Active Substance: ONDANSETRON
  58. ONDANSETRON [Suspect]
     Active Substance: ONDANSETRON
  59. ONDANSETRON [Suspect]
     Active Substance: ONDANSETRON
  60. ONDANSETRON [Suspect]
     Active Substance: ONDANSETRON
  61. ONDANSETRON [Suspect]
     Active Substance: ONDANSETRON
  62. ONDANSETRON [Suspect]
     Active Substance: ONDANSETRON
  63. ONDANSETRON [Suspect]
     Active Substance: ONDANSETRON
  64. ONDANSETRON [Suspect]
     Active Substance: ONDANSETRON
  65. ONDANSETRON [Suspect]
     Active Substance: ONDANSETRON
  66. ONDANSETRON [Suspect]
     Active Substance: ONDANSETRON
  67. CALCIUM CARBONATE [Suspect]
     Active Substance: CALCIUM CARBONATE
     Indication: Vitamin supplementation
  68. CALCIUM CARBONATE [Suspect]
     Active Substance: CALCIUM CARBONATE
     Indication: Intentional product misuse
  69. LANSOPRAZOLE [Suspect]
     Active Substance: LANSOPRAZOLE
     Indication: Antacid therapy
  70. LANSOPRAZOLE [Suspect]
     Active Substance: LANSOPRAZOLE
     Indication: Intentional product misuse
     Dosage: 30 MILLIGRAM, QD
  71. LANSOPRAZOLE [Suspect]
     Active Substance: LANSOPRAZOLE
     Indication: Off label use
     Dosage: 30 MILLIGRAM, QD
  72. LANSOPRAZOLE [Suspect]
     Active Substance: LANSOPRAZOLE
     Indication: Gastric pH decreased
     Dosage: 30 MILLIGRAM, QD
  73. LANSOPRAZOLE [Suspect]
     Active Substance: LANSOPRAZOLE
  74. LANSOPRAZOLE [Suspect]
     Active Substance: LANSOPRAZOLE
  75. LANSOPRAZOLE [Suspect]
     Active Substance: LANSOPRAZOLE
     Dosage: UNK UNK, QD
  76. LANSOPRAZOLE [Suspect]
     Active Substance: LANSOPRAZOLE
     Dosage: 60 MILLIGRAM, QD
  77. LANSOPRAZOLE [Suspect]
     Active Substance: LANSOPRAZOLE
     Dosage: UNK UNK, Q6HR
  78. LANSOPRAZOLE [Suspect]
     Active Substance: LANSOPRAZOLE
     Dosage: UNK UNK, QD
  79. LANSOPRAZOLE [Suspect]
     Active Substance: LANSOPRAZOLE
     Dosage: 30 GRAM, QD
  80. LANSOPRAZOLE [Suspect]
     Active Substance: LANSOPRAZOLE
     Dosage: 30 GRAM, QD
  81. THEOPHYLLINE [Suspect]
     Active Substance: THEOPHYLLINE
     Indication: Chronic obstructive pulmonary disease
     Dosage: 4 DOSAGE FORM, QD
  82. THEOPHYLLINE [Suspect]
     Active Substance: THEOPHYLLINE
     Indication: Off label use
     Dosage: 1 DOSAGE FORM, Q6HR
  83. THEOPHYLLINE [Suspect]
     Active Substance: THEOPHYLLINE
     Indication: Intentional product misuse
  84. MAALOX ANTACID [Suspect]
     Active Substance: ALUMINUM HYDROXIDE\DIMETHICONE\MAGNESIUM HYDROXIDE
     Indication: Constipation
  85. MAALOX ANTACID [Suspect]
     Active Substance: ALUMINUM HYDROXIDE\DIMETHICONE\MAGNESIUM HYDROXIDE
     Indication: Intentional product misuse
  86. CALCIUM [Suspect]
     Active Substance: CALCIUM
     Indication: Intentional product misuse
  87. POLYETHYLENE GLYCOL 3350 [Suspect]
     Active Substance: POLYETHYLENE GLYCOL 3350
     Indication: Off label use
  88. POLYETHYLENE GLYCOL 3350 [Suspect]
     Active Substance: POLYETHYLENE GLYCOL 3350
     Indication: Constipation
     Dosage: 17 GRAM, QD
  89. POLYETHYLENE GLYCOL 3350 [Suspect]
     Active Substance: POLYETHYLENE GLYCOL 3350
     Dosage: 3 GRAM, 1/WEEK
  90. PREVACID [Suspect]
     Active Substance: LANSOPRAZOLE
     Indication: Antacid therapy
  91. PREVACID [Suspect]
     Active Substance: LANSOPRAZOLE
     Indication: Off label use
     Dosage: 30 MILLIGRAM, QD
  92. PREVACID [Suspect]
     Active Substance: LANSOPRAZOLE
     Indication: Intentional product misuse
     Dosage: 30 MILLIGRAM, QD
  93. PREVACID [Suspect]
     Active Substance: LANSOPRAZOLE
     Dosage: 1 DOSAGE FORM, Q6HR
  94. PREVACID [Suspect]
     Active Substance: LANSOPRAZOLE
  95. PREVACID [Suspect]
     Active Substance: LANSOPRAZOLE
  96. PREVACID [Suspect]
     Active Substance: LANSOPRAZOLE
  97. PREVACID [Suspect]
     Active Substance: LANSOPRAZOLE
     Dosage: 30 MILLIGRAM, QD
  98. PREVACID [Suspect]
     Active Substance: LANSOPRAZOLE
     Indication: Antacid therapy
     Dosage: 30 MILLIGRAM, QD
  99. PREVACID [Suspect]
     Active Substance: LANSOPRAZOLE
  100. DEXILANT [Suspect]
     Active Substance: DEXLANSOPRAZOLE
     Indication: Product used for unknown indication
     Dosage: 60 MILLIGRAM, QD
  101. HYDROCORTISONE [Suspect]
     Active Substance: HYDROCORTISONE
     Indication: Angioedema
  102. RAMIPRIL [Suspect]
     Active Substance: RAMIPRIL
     Indication: Asthma
  103. RAMIPRIL [Suspect]
     Active Substance: RAMIPRIL
     Indication: Prophylaxis
  104. METRONIDAZOLE [Suspect]
     Active Substance: METRONIDAZOLE
     Indication: Bacterial infection
  105. METRONIDAZOLE [Suspect]
     Active Substance: METRONIDAZOLE
     Indication: Off label use
     Dosage: 500 MILLIGRAM, Q8HR
  106. METRONIDAZOLE [Suspect]
     Active Substance: METRONIDAZOLE
     Indication: Intentional product misuse
     Dosage: 500 MILLIGRAM, QD
  107. METRONIDAZOLE [Suspect]
     Active Substance: METRONIDAZOLE
     Dosage: 1500 MILLIGRAM, QD
  108. METRONIDAZOLE [Suspect]
     Active Substance: METRONIDAZOLE
     Dosage: 1500 MILLIGRAM, TID
  109. METRONIDAZOLE [Suspect]
     Active Substance: METRONIDAZOLE
     Dosage: 500 MILLIGRAM, TID
  110. METRONIDAZOLE [Suspect]
     Active Substance: METRONIDAZOLE
     Dosage: 500 MILLIGRAM, TID
  111. METRONIDAZOLE [Suspect]
     Active Substance: METRONIDAZOLE
  112. METRONIDAZOLE [Suspect]
     Active Substance: METRONIDAZOLE
     Dosage: UNK, Q3HR
  113. METRONIDAZOLE [Suspect]
     Active Substance: METRONIDAZOLE
     Dosage: 1500 MICROGRAM, TID
  114. METRONIDAZOLE [Suspect]
     Active Substance: METRONIDAZOLE
     Dosage: 500 MICROGRAM, TID
  115. METRONIDAZOLE [Suspect]
     Active Substance: METRONIDAZOLE
     Dosage: 1500 MICROGRAM, QD
  116. METRONIDAZOLE [Suspect]
     Active Substance: METRONIDAZOLE
     Dosage: 500 MICROGRAM, TID
  117. METRONIDAZOLE [Suspect]
     Active Substance: METRONIDAZOLE
     Dosage: UNK UNK, Q3HR
  118. METRONIDAZOLE [Suspect]
     Active Substance: METRONIDAZOLE
  119. METRONIDAZOLE [Suspect]
     Active Substance: METRONIDAZOLE
  120. METRONIDAZOLE [Suspect]
     Active Substance: METRONIDAZOLE
  121. PHYTONADIONE [Suspect]
     Active Substance: PHYTONADIONE
     Indication: Off label use
  122. PHYTONADIONE [Suspect]
     Active Substance: PHYTONADIONE
     Indication: Vitamin supplementation
     Dosage: 5 MILLIGRAM, QD
  123. AMLODIPINE [Suspect]
     Active Substance: AMLODIPINE BESYLATE
     Indication: Ventricular fibrillation
  124. AMLODIPINE [Suspect]
     Active Substance: AMLODIPINE BESYLATE
     Indication: Drug therapy
     Dosage: UNK, QD
  125. AMLODIPINE [Suspect]
     Active Substance: AMLODIPINE BESYLATE
     Dosage: 150 MILLIGRAM, QD
  126. AMLODIPINE [Suspect]
     Active Substance: AMLODIPINE BESYLATE
     Dosage: 150 MILLIGRAM, QD
  127. PHYTONADIONE [Suspect]
     Active Substance: PHYTONADIONE
     Indication: Vitamin supplementation
     Dosage: 5 MILLIGRAM, QD
  128. PHYTONADIONE [Suspect]
     Active Substance: PHYTONADIONE
     Indication: Off label use
     Dosage: 5 MILLIGRAM, QD
  129. PHYTONADIONE [Suspect]
     Active Substance: PHYTONADIONE
  130. PHYTONADIONE [Suspect]
     Active Substance: PHYTONADIONE
     Dosage: 5 MILLIGRAM, QD
  131. PHYTONADIONE [Suspect]
     Active Substance: PHYTONADIONE
  132. PHYTONADIONE [Suspect]
     Active Substance: PHYTONADIONE
     Dosage: 5 MILLIGRAM, QD
  133. PHYTONADIONE [Suspect]
     Active Substance: PHYTONADIONE
  134. PHYTONADIONE [Suspect]
     Active Substance: PHYTONADIONE
     Dosage: 5 MILLIGRAM, QD
  135. MESALAMINE [Suspect]
     Active Substance: MESALAMINE
     Indication: Product used for unknown indication
  136. ACETAMINOPHEN [Suspect]
     Active Substance: ACETAMINOPHEN
     Indication: Analgesic therapy
     Dosage: 650 MILLIGRAM, QD
  137. ACETAMINOPHEN [Suspect]
     Active Substance: ACETAMINOPHEN
     Indication: Off label use
     Dosage: 5 MILLIGRAM, QD
  138. ACETAMINOPHEN [Suspect]
     Active Substance: ACETAMINOPHEN
     Indication: Intentional product misuse
  139. ACETAMINOPHEN [Suspect]
     Active Substance: ACETAMINOPHEN
     Indication: Analgesic therapy
     Dosage: 650 MILLIGRAM, QD
  140. ACETAMINOPHEN [Suspect]
     Active Substance: ACETAMINOPHEN
     Indication: Off label use
  141. ACETAMINOPHEN [Suspect]
     Active Substance: ACETAMINOPHEN
     Indication: Intentional product misuse
  142. ACETAMINOPHEN [Suspect]
     Active Substance: ACETAMINOPHEN
  143. ACETAMINOPHEN [Suspect]
     Active Substance: ACETAMINOPHEN
     Dosage: 650 MILLIGRAM, QD
  144. ACETAMINOPHEN [Suspect]
     Active Substance: ACETAMINOPHEN
     Dosage: 0.5 MILLILITER, QD
  145. ACETAMINOPHEN [Suspect]
     Active Substance: ACETAMINOPHEN
     Dosage: 0.5 MILLILITER, QD
  146. VITAMIN C [Suspect]
     Active Substance: ASCORBIC ACID
     Indication: Vitamin supplementation
     Dosage: 170 GRAM, QD
  147. VITAMIN C [Suspect]
     Active Substance: ASCORBIC ACID
     Indication: Intentional product misuse
     Dosage: 17 GRAM, QD
  148. VITAMIN C [Suspect]
     Active Substance: ASCORBIC ACID
     Indication: Constipation
  149. POLYETHYLENE GLYCOLS [Suspect]
     Active Substance: POLYETHYLENE GLYCOLS
     Indication: Nutritional supplementation
  150. POLYETHYLENE GLYCOLS [Suspect]
     Active Substance: POLYETHYLENE GLYCOLS
     Indication: Iron deficiency
  151. POLYETHYLENE GLYCOLS [Suspect]
     Active Substance: POLYETHYLENE GLYCOLS
     Indication: Constipation
     Dosage: 3 MILLIGRAM, 1/WEEK
  152. POLYETHYLENE GLYCOLS [Suspect]
     Active Substance: POLYETHYLENE GLYCOLS
  153. POLYETHYLENE GLYCOLS [Suspect]
     Active Substance: POLYETHYLENE GLYCOLS
     Dosage: 17 MILLIGRAM, QD
  154. POLYETHYLENE GLYCOLS [Suspect]
     Active Substance: POLYETHYLENE GLYCOLS
  155. POLYETHYLENE GLYCOLS [Suspect]
     Active Substance: POLYETHYLENE GLYCOLS
     Dosage: 3 MILLIGRAM, QD
  156. POLYETHYLENE GLYCOL 3350\POTASSIUM CHLORIDE\SODIUM BICARBONATE\SODIUM [Suspect]
     Active Substance: POLYETHYLENE GLYCOL 3350\POTASSIUM CHLORIDE\SODIUM BICARBONATE\SODIUM CHLORIDE\SODIUM SULFATE
     Indication: Constipation
  157. POLYETHYLENE GLYCOL [Suspect]
     Active Substance: POLYETHYLENE GLYCOL
     Indication: Iron deficiency
  158. POLYETHYLENE GLYCOL [Suspect]
     Active Substance: POLYETHYLENE GLYCOL
     Indication: Constipation
     Dosage: 3 MILLIGRAM, 1/WEEK
  159. POLYETHYLENE GLYCOL [Suspect]
     Active Substance: POLYETHYLENE GLYCOL
     Indication: Nutritional supplementation
  160. PREVACID [Suspect]
     Active Substance: LANSOPRAZOLE
     Indication: Antacid therapy
     Dosage: 30 MILLIGRAM, QD

REACTIONS (1)
  - Ventricular fibrillation [Fatal]

NARRATIVE: CASE EVENT DATE: 20200601
